FAERS Safety Report 5427445-5 (Version None)
Quarter: 2007Q3

REPORT INFORMATION
  Report Type: 
  Country: None (occurrence: None)
  Receive Date: 20070824
  Receipt Date: 20070824
  Transmission Date: 20080115
  Serious: Yes (Other)
  Sender: FDA-Public Use
  Company Number: None

PATIENT
  Age: 26 Year
  Sex: Female
  Weight: 57.1532 kg

DRUGS (1)
  1. MEFLOQUINE [Suspect]
     Indication: MALARIA PROPHYLAXIS
     Dosage: 250 MG ONCE A WEEK PO
     Route: 048
     Dates: start: 20070714, end: 20070818

REACTIONS (6)
  - ANXIETY [None]
  - DIZZINESS [None]
  - FATIGUE [None]
  - FEAR [None]
  - IMPAIRED WORK ABILITY [None]
  - VERTIGO [None]
